FAERS Safety Report 11637289 (Version 1)
Quarter: 2015Q4

REPORT INFORMATION
  Report Type: Spontaneous
  Country: US (occurrence: US)
  Receive Date: 20151016
  Receipt Date: 20151016
  Transmission Date: 20160304
  Serious: Yes (Other)
  Sender: FDA-Public Use
  Company Number: US-PFIZER INC-2015343596

PATIENT
  Sex: Male

DRUGS (1)
  1. TIKOSYN [Suspect]
     Active Substance: DOFETILIDE
     Dosage: 0.5 MG, UNK

REACTIONS (6)
  - Insomnia [Unknown]
  - Burning feet syndrome [Unknown]
  - Pain in extremity [Unknown]
  - Gait disturbance [Unknown]
  - Diabetes mellitus [Unknown]
  - Neuropathy peripheral [Unknown]
